FAERS Safety Report 16803690 (Version 1)
Quarter: 2019Q3

REPORT INFORMATION
  Report Type: Spontaneous
  Country: DE (occurrence: DE)
  Receive Date: 20190913
  Receipt Date: 20190913
  Transmission Date: 20191005
  Serious: Yes (Death, Other)
  Sender: FDA-Public Use
  Company Number: DE-TEVA-2019-DE-1105530

PATIENT
  Age: 53 Year
  Sex: Male
  Weight: 89 kg

DRUGS (1)
  1. CAPECITABIN [Suspect]
     Active Substance: CAPECITABINE
     Indication: RECTAL CANCER METASTATIC
     Dosage: 2X2000MG
     Route: 048
     Dates: start: 20190809, end: 20190816

REACTIONS (2)
  - Cardiac death [Fatal]
  - Fall [Fatal]

NARRATIVE: CASE EVENT DATE: 20190816
